FAERS Safety Report 5755076-6 (Version None)
Quarter: 2008Q2

REPORT INFORMATION
  Report Type: 
  Country: None (occurrence: None)
  Receive Date: 20080528
  Receipt Date: 20080528
  Transmission Date: 20081010
  Serious: No
  Sender: FDA-Public Use
  Company Number: None

PATIENT

DRUGS (1)
  1. SPORT SUNSCREEN 30SPF FRUIT OF THE EARTH, INC. [Suspect]
     Dosage: SPRAY BEFORE,DURING CUTANEOUS
     Route: 003
     Dates: start: 20080524, end: 20080525

REACTIONS (4)
  - APPLICATION SITE BURN [None]
  - BURNS FIRST DEGREE [None]
  - BURNS SECOND DEGREE [None]
  - SUNBURN [None]
